FAERS Safety Report 16881330 (Version 1)
Quarter: 2019Q4

REPORT INFORMATION
  Report Type: Spontaneous
  Country: US (occurrence: US)
  Receive Date: 20191003
  Receipt Date: 20191003
  Transmission Date: 20200122
  Serious: No
  Sender: FDA-Public Use
  Company Number: US-AVEDRO-AVE-2019-0206-AE

PATIENT
  Age: 41 Year
  Sex: Male

DRUGS (12)
  1. BANDAGE CONTACT LENS [Suspect]
     Active Substance: DEVICE
     Dates: start: 20190613, end: 20190624
  2. PREDNISOLONE. [Suspect]
     Active Substance: PREDNISOLONE
     Indication: PRODUCT USED FOR UNKNOWN INDICATION
     Route: 047
     Dates: start: 20190606, end: 20190606
  3. PHOTREXA [Suspect]
     Active Substance: RIBOFLAVIN 5^-PHOSPHATE SODIUM
     Indication: KERATOCONUS
     Route: 047
     Dates: start: 20190606, end: 20190606
  4. KXL SYSTEM [Suspect]
     Active Substance: DEVICE
     Indication: KERATOCONUS
     Route: 047
     Dates: start: 20190606, end: 20190606
  5. BANDAGE CONTACT LENS [Suspect]
     Active Substance: DEVICE
     Dates: start: 20190624
  6. PHOTREXA VISCOUS [Suspect]
     Active Substance: RIBOFLAVIN 5^-PHOSPHATE SODIUM
     Indication: KERATOCONUS
     Route: 047
     Dates: start: 20190606, end: 20190606
  7. EYE RINSE [Suspect]
     Active Substance: UNSPECIFIED INGREDIENT
     Indication: EYE DROP INSTILLATION
     Route: 047
     Dates: start: 20190606, end: 20190606
  8. NUMBING MIX OF 50% PROPARACAINE AND 50% ARTIFICIAL TEARS [Suspect]
     Active Substance: PROPARACAINE
     Indication: PAIN
     Route: 047
  9. MOXIFLOXACIN. [Suspect]
     Active Substance: MOXIFLOXACIN
     Indication: PRODUCT USED FOR UNKNOWN INDICATION
     Route: 047
     Dates: start: 20190606, end: 20190606
  10. BANDAGE CONTACT LENS [Suspect]
     Active Substance: DEVICE
     Indication: PRODUCT USED FOR UNKNOWN INDICATION
     Dates: start: 20190606, end: 20190613
  11. BALANCED SALT SOLUTION [Suspect]
     Active Substance: CALCIUM CHLORIDE\MAGNESIUM CHLORIDE\POTASSIUM CHLORIDE\SODIUM ACETATE\SODIUM CHLORIDE\SODIUM CITRATE
     Indication: EYE DROP INSTILLATION
     Route: 047
     Dates: start: 20190606, end: 20190606
  12. TETRACAINE. [Suspect]
     Active Substance: TETRACAINE
     Indication: PRODUCT USED FOR UNKNOWN INDICATION
     Route: 047
     Dates: start: 20190606, end: 20190606

REACTIONS (1)
  - Corneal epithelium defect [Recovered/Resolved]

NARRATIVE: CASE EVENT DATE: 20190607
